FAERS Safety Report 20154350 (Version 3)
Quarter: 2021Q4

REPORT INFORMATION
  Report Type: Spontaneous
  Country: NL (occurrence: NL)
  Receive Date: 20211207
  Receipt Date: 20211223
  Transmission Date: 20220303
  Serious: Yes (Other)
  Sender: FDA-Public Use
  Company Number: None

PATIENT
  Age: 14 Year
  Sex: Female
  Weight: 60 kg

DRUGS (3)
  1. PROTOPIC [Suspect]
     Active Substance: TACROLIMUS
     Indication: Eczema
     Dosage: 2 X PER DAY, WHEN GOING WELL 1 X DAY, AFTERWARDS 2 X WEEK,TACROLIMUS OINTMENT 1MG/G / PROTOPIC OINTM
     Dates: start: 20200423, end: 20210706
  2. PROTOPIC [Suspect]
     Active Substance: TACROLIMUS
     Indication: Eczema
     Dosage: 2 X PER DAY, WHEN GOING WELL 1 X DAY, AFTERWARDS 2 X WEEK,TACROLIMUS OINTMENT 1MG/G / PROTOPIC OINTM
     Dates: start: 20200423, end: 20210706
  3. PROTOPIC [Suspect]
     Active Substance: TACROLIMUS
     Indication: Eczema
     Dosage: 2 X PER DAY, WHEN GOING WELL 1 X DAY, AFTERWARDS 2 X WEEK,TACROLIMUS OINTMENT 1MG/G / PROTOPIC OINTM
     Dates: start: 20200423, end: 20210706

REACTIONS (10)
  - Eczema [Recovering/Resolving]
  - Pruritus [Recovering/Resolving]
  - Asthenia [Recovering/Resolving]
  - Seizure [Recovering/Resolving]
  - Chills [Recovering/Resolving]
  - Pyrexia [Recovering/Resolving]
  - Product use issue [Unknown]
  - Dizziness [Recovering/Resolving]
  - Withdrawal syndrome [Recovering/Resolving]
  - Skin weeping [Recovering/Resolving]

NARRATIVE: CASE EVENT DATE: 20210706
